FAERS Safety Report 8041491-7 (Version None)
Quarter: 2012Q1

REPORT INFORMATION
  Report Type: 
  Country: None (occurrence: None)
  Receive Date: 20120112
  Receipt Date: 20120109
  Transmission Date: 20120608
  Serious: Yes (Death)
  Sender: FDA-Public Use
  Company Number: US-PFIZER INC-2012007174

PATIENT
  Sex: Female

DRUGS (3)
  1. XANAX [Suspect]
  2. OXYCONTIN [Interacting]
  3. ROXICODONE [Interacting]

REACTIONS (1)
  - DRUG INTERACTION [None]
